FAERS Safety Report 13194507 (Version 4)
Quarter: 2018Q3

REPORT INFORMATION
  Report Type: Report from Study
  Country: None (occurrence: NL)
  Receive Date: 20170207
  Receipt Date: 20180824
  Transmission Date: 20181010
  Serious: Yes (Other)
  Sender: FDA-Public Use
  Company Number: NL-ABBVIE-17K-114-1862231-00

PATIENT
  Sex: Male

DRUGS (5)
  1. DUODOPA [Suspect]
     Active Substance: CARBIDOPA\LEVODOPA
     Indication: PARKINSON^S DISEASE
     Dosage: MORNING DOSE:2  CONTINUOUS DOSE:5  EXTRA DOSE:2  NIGHT DOSE:2.5
     Route: 050
     Dates: start: 20060626
  2. MADOPAR DISPER [Concomitant]
     Indication: PARKINSON^S DISEASE
     Route: 065
  3. DUODOPA [Suspect]
     Active Substance: CARBIDOPA\LEVODOPA
     Dosage: MD 1.4 ML CD 4.5 ML/HR ED 4.5 ML CD NIGHT 4.4 ML/HR
     Route: 050
  4. LAXANS [Concomitant]
     Indication: PRODUCT USED FOR UNKNOWN INDICATION
     Route: 065
  5. DUODOPA [Suspect]
     Active Substance: CARBIDOPA\LEVODOPA
     Dosage: MD 1.4, CD 4.9, ED 4.5
     Route: 050

REACTIONS (14)
  - On and off phenomenon [Not Recovered/Not Resolved]
  - Muscle rigidity [Not Recovered/Not Resolved]
  - Balance disorder [Not Recovered/Not Resolved]
  - Gait disturbance [Not Recovered/Not Resolved]
  - Stoma site erythema [Recovered/Resolved]
  - Hernia [Unknown]
  - Reduced facial expression [Not Recovered/Not Resolved]
  - Paraesthesia [Not Recovered/Not Resolved]
  - Stoma site discharge [Not Recovered/Not Resolved]
  - Drug effect incomplete [Unknown]
  - Fatigue [Not Recovered/Not Resolved]
  - Abnormal dreams [Not Recovered/Not Resolved]
  - Bradykinesia [Not Recovered/Not Resolved]
  - Speech disorder [Not Recovered/Not Resolved]
